FAERS Safety Report 21297288 (Version 2)
Quarter: 2022Q3

REPORT INFORMATION
  Report Type: Spontaneous
  Country: US (occurrence: US)
  Receive Date: 20220906
  Receipt Date: 20220926
  Transmission Date: 20221027
  Serious: No
  Sender: FDA-Public Use
  Company Number: US-PFIZER INC-202201115121

PATIENT
  Age: 55 Year
  Sex: Female
  Weight: 107.05 kg

DRUGS (11)
  1. PAXLOVID [Suspect]
     Active Substance: NIRMATRELVIR\RITONAVIR
     Indication: COVID-19 treatment
     Dosage: UNK
     Route: 048
     Dates: start: 2022, end: 202209
  2. PEPCID AC [Concomitant]
     Active Substance: FAMOTIDINE
     Dosage: 20 MG
  3. SYNTHROID [Concomitant]
     Active Substance: LEVOTHYROXINE SODIUM
     Dosage: 60 MG
  4. TOPROL XL [Concomitant]
     Active Substance: METOPROLOL SUCCINATE
     Dosage: 25 MG
  5. VENLAFAXINE [Concomitant]
     Active Substance: VENLAFAXINE HYDROCHLORIDE
     Dosage: UNK
  6. VITAMIN D3 [Concomitant]
     Active Substance: CHOLECALCIFEROL
     Dosage: 5000 IU
  7. ASPIRIN [Concomitant]
     Active Substance: ASPIRIN
     Dosage: 81 MG
  8. ZYRTEC [Concomitant]
     Active Substance: CETIRIZINE HYDROCHLORIDE
     Dosage: UNK, 1X/DAY
  9. MAGNESIUM [Concomitant]
     Active Substance: MAGNESIUM
     Dosage: 400 MG
  10. MANGANESE [Concomitant]
     Active Substance: MANGANESE CHLORIDE
     Dosage: UNK
  11. VITAMIN B2 [Concomitant]
     Active Substance: RIBOFLAVIN
     Dosage: 400 MG

REACTIONS (4)
  - Drug hypersensitivity [Recovering/Resolving]
  - Rash erythematous [Recovering/Resolving]
  - Rash pruritic [Recovering/Resolving]
  - Feeling hot [Unknown]

NARRATIVE: CASE EVENT DATE: 20220902
